FAERS Safety Report 9805413 (Version 1)
Quarter: 2014Q1

REPORT INFORMATION
  Report Type: Spontaneous
  Country: US (occurrence: None)
  Receive Date: 20140107
  Receipt Date: 20140107
  Transmission Date: 20141002
  Serious: Yes (Hospitalization)
  Sender: FDA-Public Use
  Company Number: DAV-AE-NAP-13-05

PATIENT
  Age: 43 Year
  Sex: Female

DRUGS (3)
  1. NAPROXEN [Suspect]
     Indication: BACK PAIN
     Dosage: UNK, BID X 3 MONTHS, UNK
  2. PANTOPRAZOLE [Concomitant]
  3. ESOMEPRAZOLE UNKNOWN [Concomitant]

REACTIONS (2)
  - Large intestinal ulcer [None]
  - Lymphoid tissue hyperplasia [None]
